FAERS Safety Report 9267446 (Version 1)
Quarter: 2013Q2

REPORT INFORMATION
  Report Type: Spontaneous
  Country: US (occurrence: US)
  Receive Date: 20130502
  Receipt Date: 20130502
  Transmission Date: 20140414
  Serious: Yes (Hospitalization)
  Sender: FDA-Public Use
  Company Number: US-GLAXOSMITHKLINE-A0725150A

PATIENT
  Age: 56 Year
  Sex: Female
  Weight: 95.5 kg

DRUGS (3)
  1. AVANDIA [Suspect]
     Indication: TYPE 2 DIABETES MELLITUS
     Dosage: 4MG TWICE PER DAY
     Route: 065
     Dates: start: 2000, end: 200506
  2. ACTOS [Concomitant]
     Dates: start: 1998, end: 2001
  3. GLUCOPHAGE [Concomitant]
     Dates: start: 1990

REACTIONS (3)
  - Cardiac failure congestive [Not Recovered/Not Resolved]
  - Right ventricular failure [Unknown]
  - Atrial fibrillation [Unknown]
